FAERS Safety Report 15847367 (Version 1)
Quarter: 2019Q1

REPORT INFORMATION
  Report Type: Spontaneous
  Country: FR (occurrence: FR)
  Receive Date: 20190121
  Receipt Date: 20190121
  Transmission Date: 20190417
  Serious: Yes (Other)
  Sender: FDA-Public Use
  Company Number: FR-BIOGEN-2019BI00685587

PATIENT
  Age: 29 Year
  Sex: Female

DRUGS (2)
  1. XOLAIR [Concomitant]
     Active Substance: OMALIZUMAB
     Indication: PRODUCT USED FOR UNKNOWN INDICATION
     Route: 065
  2. TYSABRI [Suspect]
     Active Substance: NATALIZUMAB
     Indication: MULTIPLE SCLEROSIS
     Route: 042
     Dates: start: 20180718, end: 20181113

REACTIONS (2)
  - Asthma [Not Recovered/Not Resolved]
  - Bronchiolitis [Not Recovered/Not Resolved]

NARRATIVE: CASE EVENT DATE: 201811
